FAERS Safety Report 24378284 (Version 1)
Quarter: 2024Q3

REPORT INFORMATION
  Report Type: Spontaneous
  Country: US (occurrence: US)
  Receive Date: 20240930
  Receipt Date: 20240930
  Transmission Date: 20241016
  Serious: No
  Sender: MYLAN
  Company Number: US-MYLANLABS-2024M1085104

PATIENT
  Age: 91 Year
  Sex: Female

DRUGS (1)
  1. NORVASC [Suspect]
     Active Substance: AMLODIPINE BESYLATE
     Indication: Blood pressure abnormal
     Dosage: 10 MILLIGRAM, QD (TAKE IT IN THE MORNING)
     Route: 048

REACTIONS (3)
  - Illness [Unknown]
  - Asthenia [Unknown]
  - Drug ineffective [Unknown]
